FAERS Safety Report 25542485 (Version 1)
Quarter: 2025Q3

REPORT INFORMATION
  Report Type: Report from Study
  Country: EU (occurrence: EU)
  Receive Date: 20250711
  Receipt Date: 20250711
  Transmission Date: 20251021
  Serious: Yes (Life-Threatening, Other)
  Sender: ACCORD
  Company Number: EU-Accord-494153

PATIENT
  Age: 28 Year
  Sex: Female

DRUGS (9)
  1. ETOPOSIDE [Suspect]
     Active Substance: ETOPOSIDE
     Indication: Pinealoblastoma
  2. THALIDOMIDE [Suspect]
     Active Substance: THALIDOMIDE
     Indication: Pineocytoma
     Route: 048
  3. CYCLOPHOSPHAMIDE [Suspect]
     Active Substance: CYCLOPHOSPHAMIDE
     Indication: Pinealoblastoma
  4. CYTARABINE [Suspect]
     Active Substance: CYTARABINE
     Indication: Pinealoblastoma
     Dosage: INTRAVENTRICULAR THERAPY
  5. FENOFIBRATE [Suspect]
     Active Substance: FENOFIBRATE
     Indication: Pinealoblastoma
     Route: 048
  6. CELECOXIB [Suspect]
     Active Substance: CELECOXIB
     Indication: Pinealoblastoma
     Route: 048
  7. BEVACIZUMAB [Suspect]
     Active Substance: BEVACIZUMAB
     Indication: Pinealoblastoma
     Route: 042
  8. SULFAMETHOXAZOLE\TRIMETHOPRIM [Concomitant]
     Active Substance: SULFAMETHOXAZOLE\TRIMETHOPRIM
     Indication: Opportunistic infection prophylaxis
  9. ETOPOSIDE [Suspect]
     Active Substance: ETOPOSIDE
     Indication: Pinealoblastoma
     Dosage: IN WEEK 3 AND 4 OF 28-DAY CYCLES) AS INTRAVENTRICULAR THERAPY

REACTIONS (4)
  - Neutropenia [Unknown]
  - Meningitis bacterial [Unknown]
  - Neurotoxicity [Unknown]
  - Off label use [Unknown]
